FAERS Safety Report 21032269 (Version 1)
Quarter: 2022Q3

REPORT INFORMATION
  Report Type: Spontaneous
  Country: US (occurrence: US)
  Receive Date: 20220701
  Receipt Date: 20220701
  Transmission Date: 20221027
  Serious: Yes (Hospitalization, Other)
  Sender: FDA-Public Use
  Company Number: US-Hikma Pharmaceuticals USA Inc.-US-H14001-22-01620

PATIENT
  Age: 58 Year
  Sex: Male

DRUGS (4)
  1. LITHIUM [Suspect]
     Active Substance: LITHIUM
     Indication: Schizoaffective disorder
     Dosage: UNKNOWN
     Route: 065
  2. LITHIUM [Suspect]
     Active Substance: LITHIUM
     Route: 065
  3. RISPERIDONE [Suspect]
     Active Substance: RISPERIDONE
     Indication: Schizoaffective disorder
     Dosage: UNKNOWN
     Route: 065
  4. RISPERIDONE [Suspect]
     Active Substance: RISPERIDONE
     Route: 065

REACTIONS (7)
  - Treatment noncompliance [Unknown]
  - Electrocardiogram QT prolonged [Recovered/Resolved]
  - Hyperparathyroidism [Recovered/Resolved]
  - Catatonia [Recovering/Resolving]
  - Hypercalcaemia [Recovered/Resolved]
  - Hypophagia [Unknown]
  - Dehydration [Recovered/Resolved]
